FAERS Safety Report 4399740-2 (Version None)
Quarter: 2004Q3

REPORT INFORMATION
  Report Type: 
  Country: None (occurrence: None)
  Receive Date: 20040714
  Receipt Date: 20040628
  Transmission Date: 20050211
  Serious: No
  Sender: FDA-Public Use
  Company Number: GBS040615054

PATIENT
  Age: 16 Year
  Sex: Male

DRUGS (1)
  1. ZYPREXA [Suspect]
     Indication: CHILDHOOD PSYCHOSIS
     Dosage: 5 MG DAY
     Route: 048
     Dates: start: 20040529

REACTIONS (3)
  - DISEASE RECURRENCE [None]
  - EPISTAXIS [None]
  - NEUTROPENIA [None]
